FAERS Safety Report 8012731-5 (Version None)
Quarter: 2011Q4

REPORT INFORMATION
  Report Type: 
  Country: None (occurrence: None)
  Receive Date: 20111229
  Receipt Date: 20111219
  Transmission Date: 20120403
  Serious: Yes (Hospitalization, Other)
  Sender: FDA-Public Use
  Company Number: US-BAYER-2011-109930

PATIENT
  Age: 37 Year
  Sex: Female
  Weight: 58.05 kg

DRUGS (11)
  1. AZITHROMYCIN [Concomitant]
     Dosage: UNK
     Dates: start: 20100401
  2. XANAX [Concomitant]
     Indication: FIBROMYALGIA
  3. MECLIZINE [Concomitant]
     Indication: ANTIALLERGIC THERAPY
     Dosage: 12.5 MG, UNK
  4. PROPOXY [Concomitant]
     Indication: PAIN
     Dosage: 65 MG, UNK
  5. AMPHETAMINE AND DEXTROAMPHETAMINE SALTS [Concomitant]
     Indication: CENTRAL NERVOUS SYSTEM STIMULATION
  6. ELAVIL [Concomitant]
     Indication: FIBROMYALGIA
  7. ALPRAZOLAM [Concomitant]
     Indication: SEDATIVE THERAPY
     Dosage: 0.25 MG, UNK
  8. DARVOCET [Concomitant]
     Indication: FIBROMYALGIA
  9. YAZ [Suspect]
     Dosage: UNK
     Dates: end: 20100101
  10. VALTREX [Concomitant]
     Indication: GENITAL HERPES
     Dosage: 500 MG, UNK
     Dates: start: 20060101
  11. DOXEPIN HCL [Concomitant]
     Indication: ANTIDEPRESSANT THERAPY
     Dosage: 75 MG/24HR, UNK

REACTIONS (5)
  - PULMONARY EMBOLISM [None]
  - DEEP VEIN THROMBOSIS [None]
  - COMPLEX REGIONAL PAIN SYNDROME [None]
  - SKIN ATROPHY [None]
  - ALOPECIA [None]
